FAERS Safety Report 10668229 (Version 1)
Quarter: 2014Q4

REPORT INFORMATION
  Report Type: Spontaneous
  Country: US (occurrence: US)
  Receive Date: 20141222
  Receipt Date: 20141222
  Transmission Date: 20150529
  Serious: No
  Sender: FDA-Public Use
  Company Number: US-GLAXOSMITHKLINE-A1074789A

PATIENT

DRUGS (2)
  1. NAPROSYN [Concomitant]
     Active Substance: NAPROXEN
  2. AVODART [Suspect]
     Active Substance: DUTASTERIDE
     Indication: BLOOD URINE PRESENT
     Route: 048
     Dates: start: 2009

REACTIONS (2)
  - Off label use [Unknown]
  - Alopecia [Unknown]

NARRATIVE: CASE EVENT DATE: 2009
